FAERS Safety Report 5033395-9 (Version None)
Quarter: 2006Q2

REPORT INFORMATION
  Report Type: 
  Country: None (occurrence: None)
  Receive Date: 20060512
  Receipt Date: 20060425
  Transmission Date: 20061013
  Serious: No
  Sender: FDA-Public Use
  Company Number: SUS1-2006-00449

PATIENT
  Age: 86 Year
  Sex: Male

DRUGS (1)
  1. FOSRENOL [Suspect]
     Dosage: 1000 MG,3X/DAY:TID

REACTIONS (4)
  - ABDOMINAL PAIN UPPER [None]
  - DIZZINESS [None]
  - NAUSEA [None]
  - PAIN [None]
